FAERS Safety Report 9840225 (Version 1)
Quarter: 2013Q4

REPORT INFORMATION
  Report Type: Spontaneous
  Country: US (occurrence: None)
  Receive Date: 20131223
  Receipt Date: 20131223
  Transmission Date: 20140711
  Serious: Yes (Other)
  Sender: FDA-Public Use
  Company Number: 220080LEO

PATIENT
  Age: 60 Year
  Sex: Male

DRUGS (1)
  1. PICATO [Suspect]
     Indication: ACTINIC KERATOSIS
     Dosage: 91 IN 1 D), TOPICAL
     Route: 061
     Dates: start: 20130107, end: 20130108

REACTIONS (3)
  - Application site papules [None]
  - Application site pain [None]
  - Application site swelling [None]
